FAERS Safety Report 13182765 (Version 1)
Quarter: 2017Q1

REPORT INFORMATION
  Report Type: Spontaneous
  Country: FR (occurrence: FR)
  Receive Date: 20170203
  Receipt Date: 20170203
  Transmission Date: 20170428
  Serious: Yes (Death)
  Sender: FDA-Public Use
  Company Number: PHHY2017FR013381

PATIENT
  Age: 70 Year
  Sex: Male

DRUGS (1)
  1. FLUORESCEINE [Suspect]
     Active Substance: FLUORESCEIN SODIUM
     Indication: ANGIOGRAM RETINA
     Dosage: UNK
     Route: 042
     Dates: start: 20170116

REACTIONS (1)
  - Anaphylactic shock [Fatal]

NARRATIVE: CASE EVENT DATE: 20170116
